FAERS Safety Report 10262556 (Version 1)
Quarter: 2014Q2

REPORT INFORMATION
  Report Type: Spontaneous
  Country: US (occurrence: US)
  Receive Date: 20140626
  Receipt Date: 20140626
  Transmission Date: 20141212
  Serious: Yes (Other)
  Sender: FDA-Public Use
  Company Number: US-PFIZER INC-2014173697

PATIENT
  Sex: Female

DRUGS (1)
  1. LOMOTIL [Suspect]
     Dosage: UNK, FREQUENTLY

REACTIONS (1)
  - Clostridium difficile infection [Unknown]
